FAERS Safety Report 7640278-4 (Version None)
Quarter: 2011Q3

REPORT INFORMATION
  Report Type: 
  Country: None (occurrence: None)
  Receive Date: 20110728
  Receipt Date: 20080826
  Transmission Date: 20111222
  Serious: Yes (Death, Hospitalization, Other)
  Sender: FDA-Public Use
  Company Number: US-BAYER-200716135NA

PATIENT
  Age: 51 Year
  Sex: Female
  Weight: 63 kg

DRUGS (51)
  1. OMNISCAN [Suspect]
     Dosage: 14 ML, ONCE
     Dates: start: 20061010
  2. OMNISCAN [Suspect]
     Dosage: 13 ML, ONCE
     Dates: start: 20061024
  3. NOVOLOG [Concomitant]
  4. ZOCOR [Concomitant]
  5. SYNTHROID [Concomitant]
  6. NORVASC [Concomitant]
  7. ELAVIL [Concomitant]
  8. PHYTONADIONE [Concomitant]
  9. OMNISCAN [Suspect]
     Indication: NUCLEAR MAGNETIC RESONANCE IMAGING BRAIN
     Dosage: 13 ML, ONCE
     Route: 042
     Dates: start: 20051119, end: 20051119
  10. LASIX [Concomitant]
  11. TUMS [CALCIUM CARBONATE] [Concomitant]
  12. AMBIEN [Concomitant]
  13. PLAVIX [Concomitant]
  14. MAGNEVIST [Suspect]
     Indication: NUCLEAR MAGNETIC RESONANCE IMAGING THORACIC
     Route: 042
     Dates: start: 20061024, end: 20061024
  15. OMNISCAN [Suspect]
     Indication: NUCLEAR MAGNETIC RESONANCE IMAGING
     Dosage: 13 ML, ONCE
     Route: 042
     Dates: start: 20050603, end: 20050603
  16. OMNISCAN [Suspect]
     Dosage: 15 ML, ONCE
     Route: 042
     Dates: start: 20051220, end: 20051220
  17. COUMADIN [Concomitant]
  18. LYRICA [Concomitant]
  19. LOPERAMIDE [Concomitant]
  20. LIPITOR [Concomitant]
  21. ZANTAC [Concomitant]
  22. QUININE SULFATE [Concomitant]
  23. PROAMATINE [Concomitant]
  24. CITALOPRAM HYDROBROMIDE [Concomitant]
  25. GLUCAGON [Concomitant]
  26. SODIUM BICARBONATE [Concomitant]
  27. OXACILLIN [Concomitant]
  28. MIACALCIN [Concomitant]
  29. LACTULOSE [Concomitant]
  30. HYDRALAZINE HCL [Concomitant]
  31. ZESTRIL [Concomitant]
  32. NEPHROVITE [VIT C,VIT H,B5,B12,B9,B3,B6,B2,B1 HCL] [Concomitant]
  33. COLACE [Concomitant]
  34. GABAPENTIN [Concomitant]
  35. FLONASE [Concomitant]
  36. TOPROL-XL [Concomitant]
  37. FOLIC ACID [Concomitant]
  38. OSCAL [CALCIUM CARBONATE] [Concomitant]
  39. REGLAN [Concomitant]
  40. DEMEROL [Concomitant]
  41. HYDROCORTISONE [Concomitant]
  42. LIDODERM [Concomitant]
  43. DIGOXIN [Concomitant]
  44. FAMOTIDINE [Concomitant]
  45. HEPARIN [Concomitant]
  46. MAGNEVIST [Suspect]
     Indication: NUCLEAR MAGNETIC RESONANCE IMAGING BRAIN
     Route: 042
     Dates: start: 20061010, end: 20061010
  47. PACERONE [Concomitant]
  48. IMDUR [Concomitant]
  49. NITROGLYCERIN [Concomitant]
  50. FENTANYL [Concomitant]
  51. EPOGEN [Concomitant]

REACTIONS (15)
  - BACK PAIN [None]
  - RESPIRATORY FAILURE [None]
  - PAIN IN EXTREMITY [None]
  - JOINT RANGE OF MOTION DECREASED [None]
  - DEPRESSION [None]
  - ANHEDONIA [None]
  - NEPHROGENIC SYSTEMIC FIBROSIS [None]
  - SKIN HYPERTROPHY [None]
  - VENTRICULAR TACHYCARDIA [None]
  - ATRIAL FIBRILLATION [None]
  - HYPERTONIA [None]
  - MITRAL VALVE REPLACEMENT [None]
  - ARTHRALGIA [None]
  - MUSCULAR WEAKNESS [None]
  - ANXIETY [None]
